FAERS Safety Report 5514948-8 (Version None)
Quarter: 2007Q4

REPORT INFORMATION
  Report Type: 
  Country: None (occurrence: None)
  Receive Date: 20071113
  Receipt Date: 20061017
  Transmission Date: 20080405
  Serious: No
  Sender: FDA-Public Use
  Company Number: A0623907A

PATIENT
  Age: 74 Year
  Sex: Female

DRUGS (6)
  1. COREG [Suspect]
     Dosage: 3.125MG TWICE PER DAY
     Route: 048
     Dates: start: 20041001
  2. DIOVAN [Concomitant]
  3. ASPIRIN [Concomitant]
  4. NEXIUM [Concomitant]
  5. PRAVACHOL [Concomitant]
  6. ZETIA [Concomitant]

REACTIONS (4)
  - DIZZINESS [None]
  - DRY EYE [None]
  - FATIGUE [None]
  - HEADACHE [None]
